FAERS Safety Report 13860899 (Version 4)
Quarter: 2017Q4

REPORT INFORMATION
  Report Type: Spontaneous
  Country: RU (occurrence: RU)
  Receive Date: 20170811
  Receipt Date: 20171113
  Transmission Date: 20180320
  Serious: Yes (Other)
  Sender: FDA-Public Use
  Company Number: RU-BAYER-2017-151564

PATIENT
  Sex: Female

DRUGS (3)
  1. YARINA [Suspect]
     Active Substance: DROSPIRENONE\ETHINYL ESTRADIOL
     Indication: UTERINE POLYPECTOMY
     Dosage: UNK
     Route: 048
     Dates: start: 201609, end: 201702
  2. YAZ [Suspect]
     Active Substance: DROSPIRENONE\ETHINYL ESTRADIOL
     Indication: ANDROGENS INCREASED
     Route: 048
  3. YARINA [Suspect]
     Active Substance: DROSPIRENONE\ETHINYL ESTRADIOL
     Indication: UTERINE POLYPECTOMY
     Dosage: UNK

REACTIONS (12)
  - Tooth disorder [Not Recovered/Not Resolved]
  - Menstrual disorder [Not Recovered/Not Resolved]
  - Anaemia [Not Recovered/Not Resolved]
  - Menstruation delayed [None]
  - Hepatic enzyme increased [Recovered/Resolved]
  - Haemoconcentration [Not Recovered/Not Resolved]
  - Cervix inflammation [Recovered/Resolved]
  - Breast cyst [Not Recovered/Not Resolved]
  - Immunodeficiency [Not Recovered/Not Resolved]
  - Androgens increased [Not Recovered/Not Resolved]
  - Off label use [None]
  - Product use in unapproved indication [None]
